FAERS Safety Report 9607272 (Version 1)
Quarter: 2013Q4

REPORT INFORMATION
  Report Type: Spontaneous
  Country: FR (occurrence: FR)
  Receive Date: 20131009
  Receipt Date: 20131009
  Transmission Date: 20140711
  Serious: Yes (Hospitalization)
  Sender: FDA-Public Use
  Company Number: FR-MERCK-1310FRA000919

PATIENT
  Age: 82 Year
  Sex: Male

DRUGS (3)
  1. VICTRELIS [Suspect]
     Indication: HEPATITIS C
     Dosage: 800 MG, TID
     Dates: start: 20110725
  2. VIRAFERONPEG [Suspect]
     Indication: HEPATITIS C
     Dosage: 100 MICROGRAM, QW
     Dates: start: 20110623
  3. REBETOL [Suspect]
     Indication: HEPATITIS C
     Dosage: 1000 MG, QD
     Route: 048
     Dates: start: 20110623

REACTIONS (2)
  - Benign prostatic hyperplasia [Recovered/Resolved]
  - Urinary retention [Recovered/Resolved]
